FAERS Safety Report 18392362 (Version 1)
Quarter: 2020Q4

REPORT INFORMATION
  Report Type: Spontaneous
  Country: US (occurrence: US)
  Receive Date: 20201016
  Receipt Date: 20201016
  Transmission Date: 20210114
  Serious: Yes (Hospitalization)
  Sender: FDA-Public Use
  Company Number: None

PATIENT
  Age: 20 Year
  Sex: Female

DRUGS (7)
  1. NAPROXEN 500MG [Concomitant]
     Active Substance: NAPROXEN
     Dates: start: 20200713
  2. OXYCODONE 5MG [Concomitant]
     Active Substance: OXYCODONE
     Dates: start: 20201013
  3. HYDROXYUREA 500MG [Concomitant]
     Active Substance: HYDROXYUREA
     Dates: start: 20200911
  4. DULOXETINE 60MG [Concomitant]
     Active Substance: DULOXETINE
     Dates: start: 20200909
  5. METHADONE [Concomitant]
     Active Substance: METHADONE HYDROCHLORIDE
     Dates: start: 20200730
  6. FOLIC ACID 1MG [Concomitant]
     Active Substance: FOLIC ACID
     Dates: start: 20200909
  7. ADAKVEO [Suspect]
     Active Substance: CRIZANLIZUMAB-TMCA
     Indication: SICKLE CELL DISEASE
     Dosage: ?          OTHER FREQUENCY:EVERY 4 WEEKS;?
     Route: 042
     Dates: start: 20200317

REACTIONS (1)
  - Liver function test increased [None]

NARRATIVE: CASE EVENT DATE: 20200520
